FAERS Safety Report 25096423 (Version 2)
Quarter: 2025Q1

REPORT INFORMATION
  Report Type: Spontaneous
  Country: US (occurrence: US)
  Receive Date: 20250319
  Receipt Date: 20250326
  Transmission Date: 20250408
  Serious: No
  Sender: PFIZER
  Company Number: US-PFIZER INC-PV202500032549

PATIENT
  Age: 70 Year
  Sex: Female

DRUGS (4)
  1. AZITHROMYCIN [Suspect]
     Active Substance: AZITHROMYCIN
     Indication: Pulmonary cavitation
     Dosage: UNK, DAILY
     Dates: start: 202308, end: 202404
  2. RIFABUTIN [Suspect]
     Active Substance: RIFABUTIN
     Indication: Pulmonary cavitation
     Dates: start: 202310
  3. RIFAMPIN [Suspect]
     Active Substance: RIFAMPIN
     Indication: Pulmonary cavitation
     Dosage: UNK, DAILY
  4. ETHAMBUTOL [Suspect]
     Active Substance: ETHAMBUTOL HYDROCHLORIDE
     Indication: Pulmonary cavitation
     Dosage: UNK, DAILY

REACTIONS (1)
  - Drug ineffective [Unknown]

NARRATIVE: CASE EVENT DATE: 20240401
